FAERS Safety Report 9227297 (Version 1)
Quarter: 2013Q2

REPORT INFORMATION
  Report Type: Spontaneous
  Country: BR (occurrence: BR)
  Receive Date: 20130412
  Receipt Date: 20130412
  Transmission Date: 20140414
  Serious: Yes (Other)
  Sender: FDA-Public Use
  Company Number: BR-ELI_LILLY_AND_COMPANY-BR201304000553

PATIENT
  Age: 68 Year
  Sex: Male
  Weight: 88 kg

DRUGS (7)
  1. CIALIS [Suspect]
     Dosage: 5 MG, UNKNOWN
     Route: 065
     Dates: start: 201203
  2. CIALIS [Suspect]
     Dosage: UNK, UNKNOWN
     Route: 065
     Dates: start: 20130327, end: 20130327
  3. RIVOTRIL [Concomitant]
     Dosage: 2 MG, UNKNOWN
     Route: 065
  4. CARVEDILOL [Concomitant]
     Dosage: 25 MG, UNKNOWN
     Route: 065
  5. CLOPIDOGREL [Concomitant]
     Dosage: 75 MG, UNKNOWN
     Route: 065
  6. HIGROTON [Concomitant]
     Dosage: 25 MG, UNKNOWN
     Route: 065
  7. PANTOPRAZOLE [Concomitant]
     Dosage: 40 MG, UNKNOWN
     Route: 065

REACTIONS (4)
  - Arrhythmia [Unknown]
  - Anxiety [Unknown]
  - Malaise [Unknown]
  - Wrong technique in drug usage process [Unknown]
